FAERS Safety Report 6925068-X (Version None)
Quarter: 2010Q3

REPORT INFORMATION
  Report Type: 
  Country: None (occurrence: None)
  Receive Date: 20100810
  Receipt Date: 20100802
  Transmission Date: 20110219
  Serious: Yes (Hospitalization)
  Sender: FDA-Public Use
  Company Number: ABCOW-10-0406

PATIENT
  Age: 65 Year
  Sex: Female

DRUGS (2)
  1. ABRAXANE [Suspect]
     Indication: BREAST CANCER METASTATIC
     Dosage: RECEIVED FOR 9 MONTHS TOTAL, INTRAVENOUS
     Route: 042
  2. AVASTIN [Concomitant]

REACTIONS (3)
  - ASCITES [None]
  - CARDIAC FAILURE CONGESTIVE [None]
  - OEDEMA [None]
